FAERS Safety Report 7013161-5 (Version None)
Quarter: 2010Q3

REPORT INFORMATION
  Report Type: 
  Country: None (occurrence: None)
  Receive Date: 20100924
  Receipt Date: 20100913
  Transmission Date: 20110219
  Serious: Yes (Other)
  Sender: FDA-Public Use
  Company Number: BE-PFIZER INC-2010115926

PATIENT
  Age: 61 Year
  Sex: Female

DRUGS (8)
  1. CLINDAMYCIN PHOSPHATE [Suspect]
     Dosage: 2400 MG, 1X/DAY
     Route: 042
  2. TACROLIMUS [Interacting]
     Dosage: 15 MG, 1X/DAY
  3. TACROLIMUS [Interacting]
     Dosage: 7 MG, 1X/DAY
  4. ATOVAQUONE [Concomitant]
     Dosage: 1500 MG, 1X/DAY
  5. MYCOPHENOLATE MOFETIL [Concomitant]
     Dosage: 720 MG, 1X/DAY
  6. PREDNISOLONE [Concomitant]
  7. SULFAMETOXAZOL MED TRIMETOPRIM [Concomitant]
  8. METHYLPREDNISOLONE [Concomitant]
     Dosage: 32 MG, 1X/DAY

REACTIONS (2)
  - DRUG INTERACTION [None]
  - DRUG LEVEL DECREASED [None]
